FAERS Safety Report 8318848-X (Version None)
Quarter: 2012Q2

REPORT INFORMATION
  Report Type: 
  Country: None (occurrence: None)
  Receive Date: 20120426
  Receipt Date: 20120426
  Transmission Date: 20120825
  Serious: Yes (Other)
  Sender: FDA-Public Use
  Company Number: None

PATIENT
  Sex: Female

DRUGS (1)
  1. ESCITALOPRAM [Suspect]
     Indication: DEPRESSION
     Dosage: ES-CITALOPRAM ONE QDAY PO
     Route: 048
     Dates: start: 20120327

REACTIONS (3)
  - HEADACHE [None]
  - NAUSEA [None]
  - URTICARIA [None]
